FAERS Safety Report 8579943-3 (Version None)
Quarter: 2012Q3

REPORT INFORMATION
  Report Type: 
  Country: None (occurrence: None)
  Receive Date: 20120808
  Receipt Date: 20120727
  Transmission Date: 20120928
  Serious: Yes (Life-Threatening, Hospitalization)
  Sender: FDA-Public Use
  Company Number: FR-ELI_LILLY_AND_COMPANY-FR201207008398

PATIENT
  Sex: Female

DRUGS (3)
  1. CYMBALTA [Suspect]
     Dosage: 90 MG, QD
     Route: 064
  2. CYMBALTA [Suspect]
     Dosage: 60 MG, QD
     Route: 064
  3. CYMBALTA [Suspect]
     Dosage: 30 MG, QD
     Route: 064

REACTIONS (10)
  - PREMATURE BABY [None]
  - EXPOSURE DURING BREAST FEEDING [None]
  - WEIGHT DECREASED [None]
  - TREMOR NEONATAL [None]
  - HYPOGLYCAEMIA NEONATAL [None]
  - DRUG WITHDRAWAL SYNDROME NEONATAL [None]
  - FOETAL EXPOSURE DURING PREGNANCY [None]
  - BLOOD LACTIC ACID INCREASED [None]
  - DIARRHOEA NEONATAL [None]
  - FEEDING DISORDER NEONATAL [None]
